FAERS Safety Report 4601550-5 (Version None)
Quarter: 2005Q1

REPORT INFORMATION
  Report Type: 
  Country: None (occurrence: None)
  Receive Date: 20050131
  Receipt Date: 20041110
  Transmission Date: 20050727
  Serious: No
  Sender: FDA-Public Use
  Company Number: 200418693US

PATIENT
  Age: 70 Year
  Sex: Female

DRUGS (6)
  1. KETEK [Suspect]
     Indication: COUGH
     Dosage: 800 MG PO
     Route: 048
     Dates: start: 20041027, end: 20041027
  2. KETEK [Suspect]
     Indication: SPUTUM DISCOLOURED
     Dosage: 800 MG PO
     Route: 048
     Dates: start: 20041027, end: 20041027
  3. ZESTRIL [Concomitant]
  4. LOVASTATIN (ALTOCOR USA/) [Concomitant]
  5. OMEGA-3 TRIGLYCERIDES (OMEGA-3) [Concomitant]
  6. FENOPROFEN CALCIUM (NALFON) [Concomitant]

REACTIONS (2)
  - DIZZINESS [None]
  - NAUSEA [None]
